FAERS Safety Report 20969703 (Version 5)
Quarter: 2023Q1

REPORT INFORMATION
  Report Type: Report from Study
  Country: CA (occurrence: CA)
  Receive Date: 20220616
  Receipt Date: 20230131
  Transmission Date: 20230418
  Serious: Yes (Other)
  Sender: FDA-Public Use
  Company Number: CA-BAUSCH-BL-2022-007678

PATIENT
  Age: 54 Year
  Sex: Female

DRUGS (5)
  1. SILIQ [Suspect]
     Active Substance: BRODALUMAB
     Indication: Psoriasis
     Dosage: 210 MG / 1.5 ML WEEKLY
     Route: 058
     Dates: start: 20220309, end: 202203
  2. SILIQ [Suspect]
     Active Substance: BRODALUMAB
     Dosage: 210 MG / 1.5 ML, Q 2 WEEKS
     Route: 058
     Dates: start: 202203, end: 202206
  3. SILIQ [Suspect]
     Active Substance: BRODALUMAB
     Dosage: 210 MG / 1.5 ML, Q 2 WEEKS (RE-STARTED)
     Route: 058
     Dates: start: 20220916
  4. PANTOPRAZOLE SODIUM [Concomitant]
     Active Substance: PANTOPRAZOLE SODIUM
     Indication: Product used for unknown indication
  5. JANUVIA [Concomitant]
     Active Substance: SITAGLIPTIN PHOSPHATE
     Indication: Product used for unknown indication

REACTIONS (8)
  - Impaired gastric emptying [Unknown]
  - Helicobacter infection [Unknown]
  - Psoriasis [Not Recovered/Not Resolved]
  - Disease recurrence [Not Recovered/Not Resolved]
  - Dermatitis allergic [Unknown]
  - Dry mouth [Unknown]
  - Patient dissatisfaction with treatment [Unknown]
  - Therapy interrupted [Unknown]

NARRATIVE: CASE EVENT DATE: 20220101
